FAERS Safety Report 17891560 (Version 1)
Quarter: 2020Q2

REPORT INFORMATION
  Report Type: Spontaneous
  Country: US (occurrence: US)
  Receive Date: 20200612
  Receipt Date: 20200612
  Transmission Date: 20200714
  Serious: Yes (Other)
  Sender: FDA-Public Use
  Company Number: US-BAUSCH-BL-2020-016981

PATIENT
  Sex: Female

DRUGS (8)
  1. ATIVAN [Suspect]
     Active Substance: LORAZEPAM
     Dosage: DECREASED
     Route: 065
  2. ATIVAN [Suspect]
     Active Substance: LORAZEPAM
     Dosage: USUAL DOSE
     Route: 065
  3. LEXAPRO [Suspect]
     Active Substance: ESCITALOPRAM OXALATE
     Dosage: DECREASED
     Route: 065
  4. ATIVAN [Suspect]
     Active Substance: LORAZEPAM
     Dosage: RESTARTED
     Route: 065
  5. ATIVAN [Suspect]
     Active Substance: LORAZEPAM
     Indication: PRODUCT USED FOR UNKNOWN INDICATION
     Dosage: STOPPED
     Route: 065
  6. LEXAPRO [Suspect]
     Active Substance: ESCITALOPRAM OXALATE
     Indication: PRODUCT USED FOR UNKNOWN INDICATION
     Dosage: STOPPED
     Route: 065
  7. LEXAPRO [Suspect]
     Active Substance: ESCITALOPRAM OXALATE
     Dosage: RESTARTED
     Route: 065
  8. LEXAPRO [Suspect]
     Active Substance: ESCITALOPRAM OXALATE
     Dosage: USUAL DOSE
     Route: 065

REACTIONS (8)
  - Pain [Unknown]
  - Dizziness [Unknown]
  - Malaise [Unknown]
  - Mental disorder [Unknown]
  - Headache [Unknown]
  - Vertigo [Unknown]
  - Ill-defined disorder [Unknown]
  - Drug dependence [Not Recovered/Not Resolved]
